FAERS Safety Report 5515774-6 (Version None)
Quarter: 2007Q4

REPORT INFORMATION
  Report Type: 
  Country: None (occurrence: None)
  Receive Date: 20071114
  Receipt Date: 20071107
  Transmission Date: 20080405
  Serious: Yes (Other)
  Sender: FDA-Public Use
  Company Number: US-JNJFOC-20071102855

PATIENT
  Sex: Male

DRUGS (3)
  1. EXTRA STRENGTH TYLENOL [Suspect]
     Route: 048
  2. EXTRA STRENGTH TYLENOL [Suspect]
     Indication: NEURALGIA
     Route: 048
  3. COUMADIN [Concomitant]
     Indication: IMPLANTABLE DEFIBRILLATOR INSERTION

REACTIONS (1)
  - HAEMOPTYSIS [None]
